FAERS Safety Report 10187261 (Version 1)
Quarter: 2014Q2

REPORT INFORMATION
  Report Type: Spontaneous
  Country: FR (occurrence: FR)
  Receive Date: 20140522
  Receipt Date: 20140522
  Transmission Date: 20141212
  Serious: Yes (Other)
  Sender: FDA-Public Use
  Company Number: GB-MYLANLABS-2014S1010769

PATIENT
  Age: 3 Decade
  Sex: Female

DRUGS (7)
  1. IRBESARTAN [Suspect]
     Indication: PRODUCT USED FOR UNKNOWN INDICATION
  2. TACROLIMUS [Concomitant]
     Indication: IMMUNOSUPPRESSION
  3. MYCOPHENOLATE MOFETIL [Concomitant]
     Indication: IMMUNOSUPPRESSION
  4. PREDNISONE [Concomitant]
     Indication: IMMUNOSUPPRESSION
  5. AZATHIOPRINE [Concomitant]
     Indication: IMMUNOSUPPRESSION
  6. CALCIUM [Concomitant]
     Indication: PRODUCT USED FOR UNKNOWN INDICATION
  7. VITAMIN D [Concomitant]
     Indication: PRODUCT USED FOR UNKNOWN INDICATION

REACTIONS (1)
  - Nephropathy toxic [Unknown]
